FAERS Safety Report 6040043-8 (Version None)
Quarter: 2009Q1

REPORT INFORMATION
  Report Type: 
  Country: None (occurrence: None)
  Receive Date: 20090116
  Receipt Date: 20080102
  Transmission Date: 20090719
  Serious: No
  Sender: FDA-Public Use
  Company Number: US-BRISTOL-MYERS SQUIBB COMPANY-13994520

PATIENT
  Age: 6 Year
  Sex: Male

DRUGS (1)
  1. ABILIFY [Suspect]
     Indication: AFFECTIVE DISORDER
     Dosage: RESTARTED WITH 1 MG/DAY.
     Dates: start: 20070801

REACTIONS (1)
  - AFFECT LABILITY [None]
